FAERS Safety Report 6070481-9 (Version None)
Quarter: 2009Q1

REPORT INFORMATION
  Report Type: 
  Country: None (occurrence: None)
  Receive Date: 20090209
  Receipt Date: 20080904
  Transmission Date: 20090719
  Serious: Yes (Hospitalization)
  Sender: FDA-Public Use
  Company Number: FR-MERCK-0901FRA00038

PATIENT
  Age: 47 Year
  Sex: Male

DRUGS (8)
  1. ISENTRESS [Suspect]
     Indication: HIV INFECTION
     Route: 048
  2. PREZISTA [Suspect]
     Route: 065
  3. NORVIR [Suspect]
     Indication: HIV INFECTION
     Route: 065
  4. TRUVADA [Suspect]
     Route: 065
  5. OMEPRAZOLE [Concomitant]
     Route: 065
  6. LAROXYL [Concomitant]
     Route: 065
  7. SUBUTEX [Concomitant]
     Route: 065
  8. DOLIPRANE [Concomitant]
     Route: 065

REACTIONS (1)
  - OPTIC NEURITIS [None]
